FAERS Safety Report 24436635 (Version 2)
Quarter: 2024Q4

REPORT INFORMATION
  Report Type: Spontaneous
  Country: EG (occurrence: EG)
  Receive Date: 20241015
  Receipt Date: 20241106
  Transmission Date: 20250114
  Serious: Yes (Death, Other)
  Sender: RANBAXY
  Company Number: EG-SUN PHARMACEUTICAL INDUSTRIES LTD-2024R1-473111

PATIENT
  Age: 24 Year
  Sex: Male

DRUGS (1)
  1. CLOZAPINE [Suspect]
     Active Substance: CLOZAPINE
     Indication: Product used for unknown indication
     Dosage: UNK (1000 MG)
     Route: 048

REACTIONS (7)
  - Completed suicide [Fatal]
  - Depressed level of consciousness [Fatal]
  - Extrapyramidal disorder [Fatal]
  - Electrocardiogram QT prolonged [Fatal]
  - Hypokalaemia [Fatal]
  - Hyperglycaemia [Fatal]
  - Hypertension [Fatal]
